FAERS Safety Report 7107533-8 (Version None)
Quarter: 2010Q4

REPORT INFORMATION
  Report Type: 
  Country: None (occurrence: None)
  Receive Date: 20101117
  Receipt Date: 20101110
  Transmission Date: 20110411
  Serious: Yes (Hospitalization)
  Sender: FDA-Public Use
  Company Number: US-ELI_LILLY_AND_COMPANY-US201011003004

PATIENT
  Sex: Male
  Weight: 122.45 kg

DRUGS (12)
  1. BYETTA [Suspect]
     Indication: TYPE 2 DIABETES MELLITUS
     Dosage: 5 UG, 2/D
     Route: 058
  2. BYETTA [Suspect]
  3. NOVOLIN N [Concomitant]
     Indication: BLOOD GLUCOSE INCREASED
     Dosage: 100 U, AS NEEDED
     Route: 058
  4. GLYBURIDE AND METFORMIN HYDROCHLORIDE [Concomitant]
     Indication: PRODUCT USED FOR UNKNOWN INDICATION
     Dosage: UNK, 2/D
     Route: 048
  5. CARVEDILOL [Concomitant]
     Indication: PRODUCT USED FOR UNKNOWN INDICATION
     Dosage: UNK, 2/D
     Route: 048
  6. DIOVAN [Concomitant]
     Indication: PRODUCT USED FOR UNKNOWN INDICATION
     Dosage: UNK, DAILY (1/D)
     Route: 048
  7. CATAPRES                                /UNK/ [Concomitant]
     Indication: PRODUCT USED FOR UNKNOWN INDICATION
     Dosage: UNK, WEEKLY (1/W)
     Route: 062
  8. ASPIRIN [Concomitant]
     Indication: PRODUCT USED FOR UNKNOWN INDICATION
     Dosage: UNK, DAILY (1/D)
     Route: 048
  9. LIPITOR [Concomitant]
     Indication: PRODUCT USED FOR UNKNOWN INDICATION
     Dosage: UNK, DAILY (1/D)
     Route: 048
  10. ALPRAZOLAM [Concomitant]
     Indication: PRODUCT USED FOR UNKNOWN INDICATION
     Dosage: UNK, 2/D
     Route: 048
  11. LEVOTHYROXINE [Concomitant]
     Indication: AUTOIMMUNE THYROIDITIS
  12. FUROSEMIDE [Concomitant]
     Indication: PRODUCT USED FOR UNKNOWN INDICATION
     Dosage: 40 MG, DAILY (1/D)
     Route: 048

REACTIONS (7)
  - BLOOD GLUCOSE INCREASED [None]
  - CELLULITIS [None]
  - DRUG INEFFECTIVE [None]
  - FASCIITIS [None]
  - HYPOGLYCAEMIA [None]
  - INFECTION [None]
  - OFF LABEL USE [None]
